FAERS Safety Report 11367124 (Version 1)
Quarter: 2015Q3

REPORT INFORMATION
  Report Type: Spontaneous
  Country: US (occurrence: US)
  Receive Date: 20150811
  Receipt Date: 20150811
  Transmission Date: 20151125
  Serious: No
  Sender: FDA-Public Use
  Company Number: US-ELI_LILLY_AND_COMPANY-US201111001498

PATIENT
  Age: 83 Year
  Sex: Male
  Weight: 111.57 kg

DRUGS (1)
  1. AXIRON [Suspect]
     Active Substance: TESTOSTERONE
     Indication: TESTICULAR DISORDER
     Dosage: UNK, UNKNOWN
     Route: 065
     Dates: start: 20111020, end: 20111024

REACTIONS (2)
  - Blood testosterone decreased [Recovered/Resolved]
  - Pollakiuria [Recovered/Resolved]

NARRATIVE: CASE EVENT DATE: 20111020
